FAERS Safety Report 9617531 (Version 1)
Quarter: 2013Q4

REPORT INFORMATION
  Report Type: Spontaneous
  Country: CN (occurrence: CN)
  Receive Date: 20131011
  Receipt Date: 20131011
  Transmission Date: 20140711
  Serious: Yes (Other)
  Sender: FDA-Public Use
  Company Number: CN-GLAXOSMITHKLINE-B0928510A

PATIENT
  Age: 25 Year
  Sex: Male
  Weight: 80 kg

DRUGS (1)
  1. ZINACEF [Suspect]
     Indication: UPPER RESPIRATORY TRACT INFECTION
     Dosage: 2G TWICE PER DAY
     Route: 042
     Dates: start: 20120731, end: 20120801

REACTIONS (3)
  - Anaphylactoid reaction [Recovering/Resolving]
  - Amaurosis [Recovering/Resolving]
  - Dyspnoea [Recovering/Resolving]
